FAERS Safety Report 6479638-6 (Version None)
Quarter: 2009Q4

REPORT INFORMATION
  Report Type: 
  Country: None (occurrence: None)
  Receive Date: 20091204
  Receipt Date: 20091204
  Transmission Date: 20100525
  Serious: Yes (Other)
  Sender: FDA-Public Use
  Company Number: None

PATIENT
  Age: 13 Year
  Sex: Male
  Weight: 47 kg

DRUGS (2)
  1. METHYLPHENIDATE HCL [Suspect]
     Indication: ATTENTION DEFICIT/HYPERACTIVITY DISORDER
     Dosage: 60 MG, UNKNOWN, UNKNOWN
     Route: 065
  2. RISPERDAL [Suspect]
     Indication: CONDUCT DISORDER
     Dosage: 0.5 MG, 1X/DAY:QD, UNK
     Route: 065
     Dates: start: 20060801, end: 20070201

REACTIONS (1)
  - WEIGHT INCREASED [None]
